FAERS Safety Report 8201824-5 (Version None)
Quarter: 2012Q1

REPORT INFORMATION
  Report Type: 
  Country: None (occurrence: None)
  Receive Date: 20120312
  Receipt Date: 20120307
  Transmission Date: 20120608
  Serious: Yes (Death, Other)
  Sender: FDA-Public Use
  Company Number: JP-ROCHE-691271

PATIENT
  Age: 70 Year
  Sex: Male

DRUGS (4)
  1. LEVOLEUCOVORIN CALCIUM [Concomitant]
     Indication: COLON CANCER METASTATIC
     Route: 041
  2. FLUOROURACIL [Concomitant]
     Indication: COLON CANCER METASTATIC
     Dosage: ROUTE: DRIP AND  BOLUS
     Route: 040
  3. AVASTIN [Suspect]
     Indication: COLON CANCER METASTATIC
     Route: 041
  4. OXALIPLATIN [Concomitant]
     Indication: COLON CANCER METASTATIC
     Route: 041

REACTIONS (2)
  - PNEUMONIA [None]
  - LARGE INTESTINE PERFORATION [None]
